FAERS Safety Report 7469227-9 (Version None)
Quarter: 2011Q2

REPORT INFORMATION
  Report Type: 
  Country: None (occurrence: None)
  Receive Date: 20110510
  Receipt Date: 20110421
  Transmission Date: 20111010
  Serious: No
  Sender: FDA-Public Use
  Company Number: US-B.I. PHARMACEUTICALS,INC./RIDGEFIELD-2011-BP-00349BP

PATIENT
  Sex: Male
  Weight: 88.9 kg

DRUGS (12)
  1. MULTIPLE VITAMIN [Concomitant]
     Dosage: 1000 MG
     Route: 048
  2. VITAMIN C [Concomitant]
     Dosage: IU
     Route: 048
  3. ASPIRIN [Concomitant]
     Dosage: 81 MG
     Route: 048
     Dates: start: 20031209
  4. PRADAXA [Suspect]
     Dosage: 300 MG
     Route: 048
     Dates: start: 20101219, end: 20101220
  5. BETACAROTINE [Concomitant]
     Dosage: 200 MG
     Route: 048
  6. ZINC [Concomitant]
     Dosage: 50 MG
     Route: 048
  7. CELEBREX [Concomitant]
  8. ZETIA [Concomitant]
     Indication: BLOOD CHOLESTEROL INCREASED
     Dosage: 10 MG
     Route: 048
     Dates: start: 20031209
  9. TOPROL-XL [Concomitant]
     Indication: HYPERTENSION
     Dosage: 25 MG
     Route: 048
     Dates: start: 20031216
  10. CO Q10 [Concomitant]
     Indication: CARDIAC DISORDER
     Route: 048
  11. PRADAXA [Suspect]
     Indication: ATRIAL FIBRILLATION
     Dosage: 300 MG
     Route: 048
     Dates: start: 20101124, end: 20101126
  12. PRAVACHOL [Concomitant]
     Indication: BLOOD CHOLESTEROL INCREASED
     Dosage: 40 MG
     Route: 048
     Dates: start: 20050414

REACTIONS (4)
  - MELAENA [None]
  - GASTROENTERITIS VIRAL [None]
  - IRRITABLE BOWEL SYNDROME [None]
  - ABDOMINAL DISCOMFORT [None]
